FAERS Safety Report 18364763 (Version 3)
Quarter: 2020Q4

REPORT INFORMATION
  Report Type: Spontaneous
  Country: US (occurrence: US)
  Receive Date: 20201009
  Receipt Date: 20201020
  Transmission Date: 20210114
  Serious: No
  Sender: FDA-Public Use
  Company Number: US-TEVA-2020-US-1837959

PATIENT
  Sex: Male

DRUGS (2)
  1. AJOVY [Suspect]
     Active Substance: FREMANEZUMAB-VFRM
     Route: 065
     Dates: start: 201901
  2. AJOVY [Suspect]
     Active Substance: FREMANEZUMAB-VFRM

REACTIONS (17)
  - Dizziness [Unknown]
  - Taste disorder [Unknown]
  - Confusional state [Unknown]
  - Decreased appetite [Unknown]
  - Disturbance in attention [Unknown]
  - Palpitations [Unknown]
  - Panic attack [Unknown]
  - Insomnia [Unknown]
  - Chills [Unknown]
  - Dehydration [Unknown]
  - Constipation [Unknown]
  - Thinking abnormal [Unknown]
  - Irritability [Unknown]
  - Hypoaesthesia [Unknown]
  - Migraine [Unknown]
  - Asthenia [Unknown]
  - Flushing [Unknown]

NARRATIVE: CASE EVENT DATE: 2019
